FAERS Safety Report 5265863-9 (Version None)
Quarter: 2007Q1

REPORT INFORMATION
  Report Type: 
  Country: None (occurrence: None)
  Receive Date: 20070312
  Receipt Date: 20070312
  Transmission Date: 20070707
  Serious: No
  Sender: FDA-Public Use
  Company Number: None

PATIENT
  Age: 46 Year
  Sex: Male
  Weight: 170.0989 kg

DRUGS (1)
  1. HALDOL [Suspect]
     Indication: SCHIZOPHRENIA
     Dates: start: 20061220, end: 20061227

REACTIONS (3)
  - MUSCLE TWITCHING [None]
  - TARDIVE DYSKINESIA [None]
  - TRISMUS [None]
